FAERS Safety Report 16779017 (Version 1)
Quarter: 2019Q3

REPORT INFORMATION
  Report Type: Spontaneous
  Country: GB (occurrence: GB)
  Receive Date: 20190906
  Receipt Date: 20190906
  Transmission Date: 20191005
  Serious: Yes (Other)
  Sender: FDA-Public Use
  Company Number: GB-TEVA-2019-GB-1102821

PATIENT
  Age: 77 Year
  Sex: Female
  Weight: 59 kg

DRUGS (12)
  1. GATALIN XL [Concomitant]
     Dosage: 1 DOSAGE FORM, 1 DAY
     Dates: start: 20190409
  2. HYDROCORTISONE. [Concomitant]
     Active Substance: HYDROCORTISONE
     Dosage: APPLY BETWEEN BREASTS AS DIRECTED; 2 DOSAGE FORM, 1 DAY
     Route: 061
     Dates: start: 20190703, end: 20190731
  3. FENBID [Concomitant]
     Active Substance: IBUPROFEN
     Dosage: APPLY TO THE AFFECTED AREA AND RUB
     Dates: start: 20190703, end: 20190731
  4. BRINZOLAMIDE [Concomitant]
     Active Substance: BRINZOLAMIDE
     Dosage: ONE TO EACH EYE; 4 GTT, 1 DAY
     Dates: start: 20181130, end: 20190808
  5. QUININE BISULFATE [Suspect]
     Active Substance: QUININE BISULFATE
     Dosage: NIGHT; 300 MG, 1 DAY
     Dates: start: 20190715
  6. AMLODIPINE [Concomitant]
     Active Substance: AMLODIPINE BESYLATE
     Dosage: 1 DOSAGE FORM, 1 DAY
     Dates: start: 20181212
  7. LUMIGAN [Concomitant]
     Active Substance: BIMATOPROST
     Dosage: ONE TO EACH EYE; 2 GTT, 1 DAY
     Dates: start: 20190808
  8. ADCAL [Concomitant]
     Dosage: TAKE ONE AT LUNCHTIME AND ONE AT TEATIME, 2 DOSAGE FORM, 1 DAY
     Dates: start: 20181130
  9. ATORVASTATIN [Concomitant]
     Active Substance: ATORVASTATIN
     Dosage: 1 DOSAGE FORM, 1 DAY
     Dates: start: 20181130
  10. SALBUTAMOL [Concomitant]
     Active Substance: ALBUTEROL
     Dosage: PUFFS. UP TO FOUR TIMES A DAY, 2 DOSAGE FORM
     Dates: start: 20181130
  11. LORAZEPAM. [Concomitant]
     Active Substance: LORAZEPAM
     Dosage: HALF TO 1 AS DIRECTED
     Dates: start: 20181130
  12. TIMODINE [Concomitant]
     Dosage: APPLY A THIN LAYER AND MASSAGE IN GENTLY
     Dates: start: 20190715

REACTIONS (1)
  - Rash erythematous [Unknown]
